FAERS Safety Report 24129328 (Version 1)
Quarter: 2024Q3

REPORT INFORMATION
  Report Type: Spontaneous
  Country: US (occurrence: US)
  Receive Date: 20240723
  Receipt Date: 20240723
  Transmission Date: 20241017
  Serious: No
  Sender: ODIN PHARMACEUTICALS
  Company Number: USA--2023-US-001227

PATIENT
  Age: 75 Year
  Sex: Female

DRUGS (4)
  1. PILOCARPINE HYDROCHLORIDE [Suspect]
     Active Substance: PILOCARPINE HYDROCHLORIDE
  2. OFLOXACIN [Concomitant]
     Active Substance: OFLOXACIN
  3. Pred Forte Eye Drops [Concomitant]
  4. KETOROLAC TROMETHAMINE [Concomitant]
     Active Substance: KETOROLAC TROMETHAMINE

REACTIONS (1)
  - Miosis [Unknown]
